FAERS Safety Report 9634527 (Version 2)
Quarter: 2013Q4

REPORT INFORMATION
  Report Type: Spontaneous
  Country: US (occurrence: US)
  Receive Date: 20131021
  Receipt Date: 20131021
  Transmission Date: 20140711
  Serious: No
  Sender: FDA-Public Use
  Company Number: US-PURDUE-USA-2013-0100374

PATIENT
  Age: 82 Year
  Sex: Male
  Weight: 61.22 kg

DRUGS (2)
  1. BUTRANS [Suspect]
     Indication: PRODUCT USED FOR UNKNOWN INDICATION
     Dosage: 20 MCG/HR, WEEKLY
     Route: 062
     Dates: start: 201203, end: 201212
  2. BUTRANS [Suspect]
     Dosage: 10 MCG/HR, 2 PATCHES USED AT ONCE TO MAKE 20 MCG/HR
     Route: 062
     Dates: start: 201212

REACTIONS (3)
  - Extra dose administered [Unknown]
  - Application site irritation [Recovered/Resolved]
  - Application site hypersensitivity [Recovered/Resolved]
